FAERS Safety Report 4617485-8 (Version None)
Quarter: 2005Q1

REPORT INFORMATION
  Report Type: 
  Country: None (occurrence: None)
  Receive Date: 20050324
  Receipt Date: 20050316
  Transmission Date: 20050727
  Serious: Yes (Hospitalization)
  Sender: FDA-Public Use
  Company Number: US-JNJFOC-20050304625

PATIENT
  Sex: Female
  Weight: 72.58 kg

DRUGS (1)
  1. DURAGESIC-100 [Suspect]
     Route: 062
     Dates: start: 20000101

REACTIONS (2)
  - ABDOMINAL PAIN [None]
  - PAIN IN EXTREMITY [None]
